FAERS Safety Report 13583299 (Version 2)
Quarter: 2017Q3

REPORT INFORMATION
  Report Type: Spontaneous
  Country: FR (occurrence: FR)
  Receive Date: 20170525
  Receipt Date: 20170713
  Transmission Date: 20171127
  Serious: Yes (Other)
  Sender: FDA-Public Use
  Company Number: FR-BAXTER-2017BAX021526

PATIENT
  Age: 41 Year
  Sex: Female

DRUGS (6)
  1. ENDOXAN 1000 MG, POUDRE POUR SOLUTION INJECTABLE [Suspect]
     Active Substance: CYCLOPHOSPHAMIDE
     Indication: INVASIVE DUCTAL BREAST CARCINOMA
     Dosage: ADJUVANT CHEMOTHERAPY: FEC: FIRST COURSE
     Route: 042
     Dates: start: 20170308
  2. FLUOROURACILE ACCORD [Suspect]
     Active Substance: FLUOROURACIL
     Dosage: ADJUVANT CHEMOTHERAPY: FEC: SECOND COURSE: DOSE REDUCED
     Route: 042
     Dates: end: 20170419
  3. FLUOROURACILE ACCORD [Suspect]
     Active Substance: FLUOROURACIL
     Indication: INVASIVE DUCTAL BREAST CARCINOMA
     Dosage: ADJUVANT CHEMOTHERAPY:FEC: FIRST COURSE
     Route: 042
     Dates: start: 20170308
  4. ENDOXAN 1000 MG, POUDRE POUR SOLUTION INJECTABLE [Suspect]
     Active Substance: CYCLOPHOSPHAMIDE
     Dosage: ADJUVANT CHEMOTHERAPY: FEC: SECOND COURSE: DOSE REDUCED
     Route: 042
     Dates: end: 20170419
  5. EPIRUBICIN ACCORD [Suspect]
     Active Substance: EPIRUBICIN HYDROCHLORIDE
     Indication: INVASIVE DUCTAL BREAST CARCINOMA
     Dosage: ADJUVANT CHEMOTHERPAY:FEC: FIRST COURSE
     Route: 042
     Dates: start: 20170308
  6. EPIRUBICIN ACCORD [Suspect]
     Active Substance: EPIRUBICIN HYDROCHLORIDE
     Dosage: ADJUVANT CHEMOTHERPAY:FEC:SECOND COURSE
     Route: 042
     Dates: end: 20170419

REACTIONS (3)
  - Muscular weakness [Not Recovered/Not Resolved]
  - Asthenia [Not Recovered/Not Resolved]
  - Fatigue [Unknown]

NARRATIVE: CASE EVENT DATE: 201703
